FAERS Safety Report 15570809 (Version 1)
Quarter: 2018Q4

REPORT INFORMATION
  Report Type: Spontaneous
  Country: US (occurrence: US)
  Receive Date: 20181031
  Receipt Date: 20181031
  Transmission Date: 20190205
  Serious: Yes (Other)
  Sender: FDA-Public Use
  Company Number: None

PATIENT
  Age: 28 Year
  Sex: Male
  Weight: 61.65 kg

DRUGS (3)
  1. LAMICTAL [Concomitant]
     Active Substance: LAMOTRIGINE
  2. ATIVAN [Suspect]
     Active Substance: LORAZEPAM
     Indication: SEIZURE
     Dosage: ?          QUANTITY:10 MILLILITERS;OTHER FREQUENCY:ONCE;OTHER ROUTE:INJECTION INTO HIS VEIN?
     Dates: start: 20181012, end: 20181012
  3. MELATONIN [Concomitant]
     Active Substance: MELATONIN

REACTIONS (9)
  - Hunger [None]
  - Hyperhidrosis [None]
  - Respiratory arrest [None]
  - Choking [None]
  - Gait disturbance [None]
  - Urinary incontinence [None]
  - Anal incontinence [None]
  - Thirst [None]
  - Somnolence [None]

NARRATIVE: CASE EVENT DATE: 20181012
